FAERS Safety Report 16281651 (Version 3)
Quarter: 2019Q2

REPORT INFORMATION
  Report Type: Spontaneous
  Country: US (occurrence: US)
  Receive Date: 20190507
  Receipt Date: 20190513
  Transmission Date: 20190711
  Serious: No
  Sender: FDA-Public Use
  Company Number: US-PFIZER INC-2019189892

PATIENT
  Age: 66 Year

DRUGS (2)
  1. LYRICA [Suspect]
     Active Substance: PREGABALIN
     Indication: INTERVERTEBRAL DISC PROTRUSION
     Dosage: 50 MG, UNK
  2. CELEBREX [Concomitant]
     Active Substance: CELECOXIB

REACTIONS (1)
  - Drug ineffective [Recovered/Resolved]
